FAERS Safety Report 17325516 (Version 4)
Quarter: 2020Q2

REPORT INFORMATION
  Report Type: Spontaneous
  Country: US (occurrence: US)
  Receive Date: 20200127
  Receipt Date: 20200527
  Transmission Date: 20200713
  Serious: Yes (Other)
  Sender: FDA-Public Use
  Company Number: US-PFIZER INC-2020034623

PATIENT
  Age: 60 Year
  Sex: Female

DRUGS (6)
  1. IBRANCE [Suspect]
     Active Substance: PALBOCICLIB
     Dosage: 75 MG, DAILY
     Dates: start: 20200121, end: 2020
  2. IBRANCE [Suspect]
     Active Substance: PALBOCICLIB
     Indication: BREAST CANCER FEMALE
     Dosage: 125 MG, UNK
  3. IBRANCE [Suspect]
     Active Substance: PALBOCICLIB
     Dosage: 75 MG
     Dates: start: 20200217
  4. IBRANCE [Suspect]
     Active Substance: PALBOCICLIB
     Dosage: 75 MG, CYCLIC (ONCE A DAY FOR 21 DAYS WITH 7 DAYS OFF)
     Route: 048
     Dates: start: 20191001, end: 2019
  5. FASLODEX [Suspect]
     Active Substance: FULVESTRANT
     Dosage: UNK
  6. IBRANCE [Suspect]
     Active Substance: PALBOCICLIB
     Dosage: 75 MG, CYCLIC (21 DAYS WITH 7 DAYS OFF )
     Route: 048
     Dates: start: 20191122, end: 20200121

REACTIONS (7)
  - Loss of consciousness [Unknown]
  - Fatigue [Unknown]
  - Blood count abnormal [Unknown]
  - Nausea [Unknown]
  - Diarrhoea [Unknown]
  - Joint injury [Unknown]
  - Headache [Recovering/Resolving]
